FAERS Safety Report 23734711 (Version 5)
Quarter: 2024Q3

REPORT INFORMATION
  Report Type: Spontaneous
  Country: DE (occurrence: DE)
  Receive Date: 20240412
  Receipt Date: 20240913
  Transmission Date: 20241016
  Serious: Yes (Other)
  Sender: ROCHE
  Company Number: DE-002147023-NVSC2024DE073238

PATIENT
  Sex: Female

DRUGS (2)
  1. LUCENTIS [Suspect]
     Active Substance: RANIBIZUMAB
     Indication: Neovascular age-related macular degeneration
     Route: 065
     Dates: start: 20240228
  2. LUCENTIS [Suspect]
     Active Substance: RANIBIZUMAB
     Route: 065
     Dates: start: 20240424

REACTIONS (18)
  - Oropharyngitis fungal [Recovering/Resolving]
  - Feeling abnormal [Recovering/Resolving]
  - Freezing phenomenon [Recovering/Resolving]
  - Lymph node pain [Recovering/Resolving]
  - Poor quality sleep [Recovering/Resolving]
  - Somnolence [Recovering/Resolving]
  - Decreased appetite [Recovering/Resolving]
  - Body temperature increased [Recovering/Resolving]
  - Haemoptysis [Recovered/Resolved]
  - Lymphadenopathy [Recovering/Resolving]
  - Glossodynia [Recovering/Resolving]
  - Burning sensation [Recovered/Resolved]
  - Dysphagia [Recovered/Resolved]
  - Stress [Recovering/Resolving]
  - Scab [Recovering/Resolving]
  - Arthralgia [Recovering/Resolving]
  - Cough [Recovering/Resolving]
  - Pain in extremity [Recovering/Resolving]

NARRATIVE: CASE EVENT DATE: 20240229
